FAERS Safety Report 5495220-1 (Version None)
Quarter: 2007Q4

REPORT INFORMATION
  Report Type: 
  Country: None (occurrence: None)
  Receive Date: 20071024
  Receipt Date: 20071017
  Transmission Date: 20080405
  Serious: Yes (Other)
  Sender: FDA-Public Use
  Company Number: JP-ABBOTT-07P-087-0421324-00

PATIENT
  Age: 28 Year
  Sex: Female

DRUGS (2)
  1. CLARITHROMYCIN [Suspect]
     Indication: NASOPHARYNGITIS
     Route: 048
  2. PEROSPIRONE HYDROCHLORIDE HYDRATE [Interacting]
     Indication: MENTAL DISORDER

REACTIONS (2)
  - DRUG INTERACTION [None]
  - DYSTONIA [None]
